FAERS Safety Report 5900605-2 (Version None)
Quarter: 2008Q3

REPORT INFORMATION
  Report Type: 
  Country: None (occurrence: None)
  Receive Date: 20080926
  Receipt Date: 20080915
  Transmission Date: 20090109
  Serious: Yes (Disabling)
  Sender: FDA-Public Use
  Company Number: NO-PFIZER INC-2008077767

PATIENT
  Sex: Male

DRUGS (13)
  1. CLINDAMYCIN PHOSPHATE [Suspect]
     Route: 042
     Dates: start: 20080422, end: 20080424
  2. ERYTHROMYCIN [Suspect]
     Route: 042
     Dates: start: 20080424, end: 20080502
  3. GENTAMICIN [Suspect]
     Route: 042
     Dates: start: 20080422, end: 20080424
  4. PENICILLIN V POTASSIUM [Suspect]
     Route: 048
     Dates: start: 20080419, end: 20080421
  5. PENICILLIN G [Suspect]
     Indication: SEPSIS
     Route: 042
     Dates: start: 20080421, end: 20080423
  6. AFIPRAN [Concomitant]
     Route: 048
     Dates: start: 20080401, end: 20080424
  7. KETOBEMIDONE HYDROCHLORIDE [Concomitant]
     Route: 030
     Dates: start: 20080422, end: 20080423
  8. SOBRIL [Concomitant]
     Route: 048
     Dates: start: 20080422, end: 20080425
  9. VOLTAREN [Concomitant]
     Route: 048
     Dates: start: 20080422, end: 20080424
  10. ACETAMINOPHEN [Concomitant]
     Route: 048
     Dates: start: 20080421, end: 20080424
  11. TRAMADOL HCL [Concomitant]
     Route: 048
     Dates: start: 20080422, end: 20080423
  12. DICLOFENAC [Concomitant]
     Route: 030
     Dates: start: 20080421, end: 20080421
  13. ZOPICLONE [Concomitant]
     Route: 048
     Dates: start: 20080422, end: 20080424

REACTIONS (2)
  - OCULAR HYPERAEMIA [None]
  - VISUAL IMPAIRMENT [None]
